FAERS Safety Report 4781926-6 (Version None)
Quarter: 2005Q3

REPORT INFORMATION
  Report Type: 
  Country: None (occurrence: None)
  Receive Date: 20050928
  Receipt Date: 20050824
  Transmission Date: 20060218
  Serious: Yes (Other)
  Sender: FDA-Public Use
  Company Number: GB-MERCK-0508GBR00144

PATIENT
  Sex: Female

DRUGS (1)
  1. FOSAMAX [Suspect]
     Route: 048
     Dates: start: 20040101, end: 20050101

REACTIONS (5)
  - BASAL CELL CARCINOMA [None]
  - BONE PAIN [None]
  - DYSPHONIA [None]
  - HAEMATOCHEZIA [None]
  - SKIN LESION [None]
